FAERS Safety Report 9247769 (Version 1)
Quarter: 2013Q1

REPORT INFORMATION
  Report Type: Spontaneous
  Country: US (occurrence: None)
  Receive Date: 20121130
  Receipt Date: 20121130
  Transmission Date: 20140127
  Serious: Yes (Other)
  Sender: FDA-Public Use
  Company Number: 345137

PATIENT
  Age: 43 Year
  Sex: Male
  Weight: 99.8 kg

DRUGS (7)
  1. NOVOLOG [Suspect]
     Indication: TYPE 1 DIABETES MELLITUS
     Dosage: SLIDING SCALE, SUBCUTAN.-PUMP
     Dates: start: 2007
  2. BUSPAR (BUSPIRONE HYDROCHLORIDE) [Concomitant]
  3. KLONOPIN (CLONAZEPAM) (TABLETS) [Concomitant]
  4. NEURONTIN (GABAPENTIN) [Concomitant]
  5. SKELAXIN / 00611501/ (METAXALONE) [Concomitant]
  6. LIPITOR (ATORVASTATIN CALCIUM) [Concomitant]
  7. LISINOPRIL/HYDROCHLOROTHIAZIDE (HYDROCHLOROTHIAZIDE, LISINOPRIL) [Concomitant]

REACTIONS (1)
  - Blood glucose increased [None]
